FAERS Safety Report 21522313 (Version 1)
Quarter: 2022Q4

REPORT INFORMATION
  Report Type: Spontaneous
  Country: CH (occurrence: CH)
  Receive Date: 20221028
  Receipt Date: 20221028
  Transmission Date: 20230113
  Serious: Yes (Hospitalization)
  Sender: FDA-Public Use
  Company Number: CH-STRIDES ARCOLAB LIMITED-2022SP014077

PATIENT
  Age: 70 Year
  Sex: Male

DRUGS (7)
  1. LISINOPRIL [Interacting]
     Active Substance: LISINOPRIL
     Indication: Hypertension
     Dosage: 5 MILLIGRAM, QD  (1-0-0-0)
     Route: 065
  2. LISINOPRIL [Interacting]
     Active Substance: LISINOPRIL
     Dosage: UNK
     Route: 065
  3. CIPROFLOXACIN [Interacting]
     Active Substance: CIPROFLOXACIN
     Indication: Urosepsis
     Dosage: 500 MILLIGRAM, BID (FOR ADDITIONAL 4 DAYS)
     Route: 048
  4. TIZANIDINE HYDROCHLORIDE [Interacting]
     Active Substance: TIZANIDINE HYDROCHLORIDE
     Indication: Hemiparesis
     Dosage: 6 MILLIGRAM, BID (2-1-0-0 CPR/DAY) MODIFIED RELEASE)
     Route: 065
  5. TIZANIDINE HYDROCHLORIDE [Interacting]
     Active Substance: TIZANIDINE HYDROCHLORIDE
     Dosage: UNK
     Route: 065
  6. TIZANIDINE HYDROCHLORIDE [Interacting]
     Active Substance: TIZANIDINE HYDROCHLORIDE
     Dosage: 4 MILLIGRAM, BID
     Route: 065
  7. CEFTRIAXONE [Concomitant]
     Active Substance: CEFTRIAXONE
     Indication: Urosepsis
     Dosage: 2 GRAM PER DAY
     Route: 065

REACTIONS (2)
  - Drug interaction [Unknown]
  - Hypotension [Recovered/Resolved]
